FAERS Safety Report 23181761 (Version 1)
Quarter: 2023Q4

REPORT INFORMATION
  Report Type: Spontaneous
  Country: CN (occurrence: CN)
  Receive Date: 20231114
  Receipt Date: 20231114
  Transmission Date: 20240109
  Serious: Yes (Death, Other)
  Sender: FDA-Public Use
  Company Number: CN-009507513-2311CHN003708

PATIENT
  Age: 59 Year
  Sex: Female
  Weight: 70 kg

DRUGS (14)
  1. KEYTRUDA [Suspect]
     Active Substance: PEMBROLIZUMAB
     Indication: Metastatic malignant melanoma
     Dosage: ONCE
     Dates: start: 20211012, end: 20211012
  2. KEYTRUDA [Suspect]
     Active Substance: PEMBROLIZUMAB
     Dosage: 200 MILLIGRAM
     Dates: start: 20211129, end: 20211129
  3. KEYTRUDA [Suspect]
     Active Substance: PEMBROLIZUMAB
     Dosage: 200 MILLIGRAM
     Dates: start: 20211220, end: 20211220
  4. KEYTRUDA [Suspect]
     Active Substance: PEMBROLIZUMAB
     Dosage: 200 MILLIGRAM, Q3W, MONOTHERAPY
     Dates: start: 20220112, end: 20230301
  5. KEYTRUDA [Suspect]
     Active Substance: PEMBROLIZUMAB
     Dosage: UNK
     Dates: start: 20230310
  6. KEYTRUDA [Suspect]
     Active Substance: PEMBROLIZUMAB
     Dosage: 25 MG INTRATHECAL INJECTION + 175 MG INTRAVENOUS DRIP (ALSO REPORTED AS IV); Q3W
     Dates: start: 20230524, end: 20230614
  7. TRAMETINIB [Concomitant]
     Active Substance: TRAMETINIB
     Indication: Metastatic malignant melanoma
     Dosage: UNK
     Route: 048
     Dates: start: 20211109
  8. TRAMETINIB [Concomitant]
     Active Substance: TRAMETINIB
     Dosage: UNK
     Route: 048
     Dates: start: 20220412
  9. TRAMETINIB [Concomitant]
     Active Substance: TRAMETINIB
     Dosage: UNK
     Route: 048
     Dates: start: 20230310
  10. TRAMETINIB [Concomitant]
     Active Substance: TRAMETINIB
     Dosage: UNK
     Route: 048
     Dates: start: 20230416, end: 20230524
  11. DABRAFENIB [Concomitant]
     Active Substance: DABRAFENIB
     Indication: Metastatic malignant melanoma
     Dosage: UNK
     Route: 048
     Dates: start: 20211109
  12. DABRAFENIB [Concomitant]
     Active Substance: DABRAFENIB
     Dosage: UNK
     Route: 048
     Dates: start: 20220412
  13. DABRAFENIB [Concomitant]
     Active Substance: DABRAFENIB
     Dosage: UNK
     Route: 048
     Dates: start: 20230310
  14. DABRAFENIB [Concomitant]
     Active Substance: DABRAFENIB
     Dosage: UNK
     Route: 048
     Dates: start: 20230416, end: 20230524

REACTIONS (15)
  - Death [Fatal]
  - Bacteraemia [Recovering/Resolving]
  - Septic shock [Recovering/Resolving]
  - Malignant neoplasm progression [Unknown]
  - Gastrointestinal disorder [Recovering/Resolving]
  - Skin reaction [Unknown]
  - Culture urine positive [Recovering/Resolving]
  - Escherichia urinary tract infection [Recovering/Resolving]
  - Blood calcium abnormal [Unknown]
  - White blood cell count abnormal [Unknown]
  - Blood potassium abnormal [Unknown]
  - White blood cell count decreased [Unknown]
  - Inappropriate schedule of product administration [Unknown]
  - Incorrect route of product administration [Unknown]
  - Incorrect route of product administration [Unknown]

NARRATIVE: CASE EVENT DATE: 20211101
